FAERS Safety Report 13086332 (Version 1)
Quarter: 2017Q1

REPORT INFORMATION
  Report Type: Report from Study
  Country: ES (occurrence: ES)
  Receive Date: 20170104
  Receipt Date: 20170104
  Transmission Date: 20170428
  Serious: Yes (Hospitalization)
  Sender: FDA-Public Use
  Company Number: ES-PFIZER INC-2016604007

PATIENT
  Age: 79 Year
  Sex: Male

DRUGS (7)
  1. PROPANOLOL /00030001/ [Concomitant]
     Active Substance: PROPRANOLOL HYDROCHLORIDE
     Indication: ATRIAL FIBRILLATION
     Dosage: 10 MG, 2X/DAY (1-0-1)
     Route: 048
     Dates: start: 20150810, end: 20150914
  2. TRILEPTAL [Concomitant]
     Active Substance: OXCARBAZEPINE
     Indication: EPILEPSY
     Dosage: 600 MG, 2X/DAY (1-0-1)
     Route: 048
     Dates: start: 19960312
  3. TRAJENTA [Concomitant]
     Active Substance: LINAGLIPTIN
     Dosage: 1 DF, 1X/DAY (1-0-0)
     Route: 048
     Dates: start: 20140608
  4. ACFOL [Concomitant]
     Active Substance: FOLIC ACID
     Dosage: 5 MG, DAILY
     Route: 048
     Dates: start: 20150413
  5. NORFLOXACIN [Concomitant]
     Active Substance: NORFLOXACIN
     Indication: PROPHYLAXIS
     Dosage: DAILY DURING ONE WEEK MONTHLY (1-0-0)
     Route: 048
     Dates: start: 20150810
  6. ALDACTONE [Suspect]
     Active Substance: SPIRONOLACTONE
     Indication: ASCITES
     Dosage: 100 MG, 1X/DAY
     Route: 048
     Dates: start: 20150810, end: 20150914
  7. LUMINAL /00023201/ [Concomitant]
     Active Substance: PHENOBARBITAL SODIUM
     Dosage: 100 MG, 2X/DAY (1-0-1)
     Route: 048
     Dates: start: 19960312

REACTIONS (2)
  - Hyponatraemia [Recovered/Resolved]
  - Encephalopathy [Recovered/Resolved]

NARRATIVE: CASE EVENT DATE: 20150914
